FAERS Safety Report 15723883 (Version 1)
Quarter: 2018Q4

REPORT INFORMATION
  Report Type: Spontaneous
  Country: IT (occurrence: IT)
  Receive Date: 20181214
  Receipt Date: 20181214
  Transmission Date: 20190205
  Serious: Yes (Hospitalization, Other)
  Sender: FDA-Public Use
  Company Number: IT-BAYER-2018-233398

PATIENT
  Age: 59 Year
  Sex: Male

DRUGS (2)
  1. KETOROLAC [Suspect]
     Active Substance: KETOROLAC\KETOROLAC TROMETHAMINE
     Indication: BACK PAIN
     Dosage: 60 MG
     Route: 030
  2. ACETYLSALICYLIC ACID({=100 MG) [Suspect]
     Active Substance: ASPIRIN
     Indication: BACK PAIN
     Dosage: 100 MG

REACTIONS (3)
  - Off label use [None]
  - Product use in unapproved indication [None]
  - Gastric ulcer [None]
